FAERS Safety Report 10020205 (Version 1)
Quarter: 2014Q1

REPORT INFORMATION
  Report Type: Spontaneous
  Country: US (occurrence: US)
  Receive Date: 20140319
  Receipt Date: 20140319
  Transmission Date: 20141002
  Serious: No
  Sender: FDA-Public Use
  Company Number: US-BIOGENIDEC-2014BI024119

PATIENT
  Age: 32 Year
  Sex: Female

DRUGS (1)
  1. TYSABRI [Suspect]
     Indication: MULTIPLE SCLEROSIS
     Route: 042
     Dates: start: 20121119

REACTIONS (4)
  - Menstrual disorder [Recovered/Resolved]
  - Asthenia [Not Recovered/Not Resolved]
  - Malaise [Recovered/Resolved]
  - Peroneal nerve palsy [Not Recovered/Not Resolved]
